FAERS Safety Report 10220350 (Version 8)
Quarter: 2015Q4

REPORT INFORMATION
  Report Type: Report from Study
  Country: US (occurrence: US)
  Receive Date: 20140606
  Receipt Date: 20151006
  Transmission Date: 20160304
  Serious: Yes (Hospitalization)
  Sender: FDA-Public Use
  Company Number: US-BIOGENIDEC-2014BI050753

PATIENT
  Age: 59 Year
  Sex: Male

DRUGS (2)
  1. AVONEX [Suspect]
     Active Substance: INTERFERON BETA-1A
     Indication: MULTIPLE SCLEROSIS
     Route: 030
     Dates: start: 20010102
  2. AVONEX [Suspect]
     Active Substance: INTERFERON BETA-1A
     Indication: MULTIPLE SCLEROSIS
     Route: 030
     Dates: start: 19980801

REACTIONS (11)
  - Concussion [Recovered/Resolved]
  - Vertigo [Recovered/Resolved]
  - Head injury [Recovered/Resolved]
  - Memory impairment [Recovered/Resolved]
  - Joint injury [Not Recovered/Not Resolved]
  - Laceration [Recovered/Resolved]
  - Neck injury [Not Recovered/Not Resolved]
  - Influenza [Recovered/Resolved]
  - Back injury [Recovered/Resolved]
  - Road traffic accident [Recovered/Resolved]
  - Shock [Recovered/Resolved]

NARRATIVE: CASE EVENT DATE: 200101
